FAERS Safety Report 8620211-9 (Version None)
Quarter: 2012Q3

REPORT INFORMATION
  Report Type: 
  Country: None (occurrence: None)
  Receive Date: 20120816
  Receipt Date: 20120816
  Transmission Date: 20120928
  Serious: No
  Sender: FDA-Public Use
  Company Number: None

PATIENT
  Age: 63 Year
  Sex: Male
  Weight: 81 kg

DRUGS (19)
  1. ENOXAPARIN [Concomitant]
  2. ACETAMINOPHEN [Concomitant]
  3. DOCUSATE [Concomitant]
  4. PREGABALIN [Concomitant]
  5. DOCUSATE-SENNA [Concomitant]
  6. BOSACODYL [Concomitant]
  7. WARFARIN SODIUM [Concomitant]
  8. MEPERIDINE HCL [Concomitant]
  9. ONDANSETRON [Concomitant]
  10. RIVAROXABAN 10 MG JANSEN PHARMACEUTICALS, [Suspect]
     Indication: THROMBOSIS PROPHYLAXIS
     Dates: start: 20111228, end: 20111229
  11. RIVAROXABAN 10 MG JANSEN PHARMACEUTICALS, [Suspect]
     Indication: KNEE ARTHROPLASTY
     Dates: start: 20111228, end: 20111229
  12. MORPHINE [Concomitant]
  13. HYDROCODONE [Concomitant]
  14. SEQUENTIAL COMPRESSION DEVICE [Concomitant]
  15. CEFAZOLIN [Concomitant]
  16. FENTANYL [Concomitant]
  17. CELECOXIB [Concomitant]
  18. METOCLOPRAMIDE [Concomitant]
  19. PROMETHAZINE [Concomitant]

REACTIONS (1)
  - PULMONARY EMBOLISM [None]
